FAERS Safety Report 19827776 (Version 2)
Quarter: 2021Q3

REPORT INFORMATION
  Report Type: Spontaneous
  Country: CA (occurrence: CA)
  Receive Date: 20210914
  Receipt Date: 20210927
  Transmission Date: 20211014
  Serious: Yes (Other)
  Sender: FDA-Public Use
  Company Number: CA-PFIZER INC-2020416686

PATIENT
  Age: 66 Year
  Sex: Female
  Weight: 100 kg

DRUGS (1)
  1. XELJANZ [Suspect]
     Active Substance: TOFACITINIB CITRATE
     Indication: RHEUMATOID ARTHRITIS
     Dosage: 5 MG, 2X/DAY
     Route: 048
     Dates: start: 2019, end: 2021

REACTIONS (8)
  - Arthritis [Unknown]
  - Chills [Unknown]
  - Arthropathy [Unknown]
  - Illness [Unknown]
  - Hyperhidrosis [Unknown]
  - Dystonia [Unknown]
  - Drug ineffective [Unknown]
  - Influenza like illness [Unknown]
